FAERS Safety Report 5932588-3 (Version None)
Quarter: 2008Q4

REPORT INFORMATION
  Report Type: 
  Country: None (occurrence: None)
  Receive Date: 20081009
  Receipt Date: 20071112
  Transmission Date: 20090506
  Serious: Yes (Hospitalization)
  Sender: FDA-Public Use
  Company Number: PHEH2007US14195

PATIENT
  Age: 64 Year
  Sex: Male
  Weight: 134.6 kg

DRUGS (1)
  1. ZOMETA [Suspect]
     Indication: METASTASES TO BONE
     Dosage: 4 MG, INTRAVENOUS
     Route: 042
     Dates: start: 20071025, end: 20071025

REACTIONS (1)
  - BONE PAIN [None]
